FAERS Safety Report 20448649 (Version 5)
Quarter: 2022Q3

REPORT INFORMATION
  Report Type: Spontaneous
  Country: US (occurrence: US)
  Receive Date: 20220209
  Receipt Date: 20220715
  Transmission Date: 20221027
  Serious: No
  Sender: FDA-Public Use
  Company Number: US-BIOVITRUM-2022US01573

PATIENT
  Age: 57 Year
  Sex: Male

DRUGS (3)
  1. KINERET [Suspect]
     Active Substance: ANAKINRA
     Indication: Polyarthritis
     Dates: start: 20190429
  2. KINERET [Suspect]
     Active Substance: ANAKINRA
     Indication: Muckle-Wells syndrome
     Route: 058
     Dates: start: 20210330
  3. KINERET [Suspect]
     Active Substance: ANAKINRA
     Route: 058
     Dates: start: 20190710

REACTIONS (5)
  - Bladder disorder [Unknown]
  - Prostatic disorder [Unknown]
  - Cystitis interstitial [Unknown]
  - Product dose omission issue [Unknown]
  - Off label use [Unknown]

NARRATIVE: CASE EVENT DATE: 20190710
